FAERS Safety Report 5060087-2 (Version None)
Quarter: 2006Q3

REPORT INFORMATION
  Report Type: 
  Country: None (occurrence: None)
  Receive Date: 20060719
  Receipt Date: 20060711
  Transmission Date: 20061208
  Serious: Yes (Other)
  Sender: FDA-Public Use
  Company Number: 13862

PATIENT
  Age: 33 Year
  Sex: Female

DRUGS (3)
  1. METHOTREXATE [Suspect]
     Indication: BONE SARCOMA
     Dosage: 15 G DAILY IV
     Route: 042
     Dates: start: 20060110, end: 20060110
  2. METHOTREXATE [Suspect]
     Indication: BONE SARCOMA
     Dosage: 15 G DAILY
     Dates: start: 20060117, end: 20060117
  3. NEOPHAGEN [Concomitant]

REACTIONS (5)
  - ALANINE AMINOTRANSFERASE INCREASED [None]
  - ASPARTATE AMINOTRANSFERASE INCREASED [None]
  - BACK PAIN [None]
  - ERYTHEMA [None]
  - PRURITUS GENERALISED [None]
